FAERS Safety Report 25529163 (Version 2)
Quarter: 2025Q3

REPORT INFORMATION
  Report Type: Spontaneous
  Country: US (occurrence: US)
  Receive Date: 20250708
  Receipt Date: 20250709
  Transmission Date: 20251020
  Serious: Yes (Other)
  Sender: PFIZER
  Company Number: US-PFIZER INC-202500135017

PATIENT
  Age: 57 Year
  Sex: Male

DRUGS (1)
  1. BRAFTOVI [Suspect]
     Active Substance: ENCORAFENIB
     Indication: Colon cancer stage IV
     Dosage: 225 MG, 1X/DAY (3 CAPSULES PER ORAL, ONCE DAILY)
     Route: 048

REACTIONS (1)
  - Metastases to liver [Unknown]
